FAERS Safety Report 5959127-5 (Version None)
Quarter: 2008Q4

REPORT INFORMATION
  Report Type: 
  Country: None (occurrence: None)
  Receive Date: 20081120
  Receipt Date: 20080320
  Transmission Date: 20090506
  Serious: No
  Sender: FDA-Public Use
  Company Number: A0706153A

PATIENT
  Age: 48 Year
  Sex: Female

DRUGS (1)
  1. BUPROPION HYDROCHLORIDE [Suspect]
     Indication: DEPRESSION
     Dosage: 200MG TWICE PER DAY
     Route: 048
     Dates: start: 20080117, end: 20080118

REACTIONS (4)
  - COGNITIVE DISORDER [None]
  - DRUG INEFFECTIVE [None]
  - FATIGUE [None]
  - PRODUCT QUALITY ISSUE [None]
